FAERS Safety Report 8418035-0 (Version None)
Quarter: 2012Q2

REPORT INFORMATION
  Report Type: 
  Country: None (occurrence: None)
  Receive Date: 20120607
  Receipt Date: 20120528
  Transmission Date: 20120825
  Serious: Yes (Other)
  Sender: FDA-Public Use
  Company Number: US-JNJFOC-20120521516

PATIENT
  Age: 55 Year
  Sex: Female

DRUGS (4)
  1. PROTONIX [Interacting]
     Indication: PRODUCT USED FOR UNKNOWN INDICATION
     Route: 065
  2. DOXORUBICIN HCL [Suspect]
     Indication: OVARIAN CANCER
     Route: 042
  3. AMBIEN [Interacting]
     Indication: PRODUCT USED FOR UNKNOWN INDICATION
     Route: 065
  4. MARINOL [Interacting]
     Indication: PRODUCT USED FOR UNKNOWN INDICATION
     Route: 065

REACTIONS (12)
  - RESPIRATORY FAILURE [None]
  - HYPOXIA [None]
  - URINARY TRACT INFECTION [None]
  - DEHYDRATION [None]
  - PERIPHERAL ISCHAEMIA [None]
  - SEPSIS [None]
  - PANCYTOPENIA [None]
  - PULSELESS ELECTRICAL ACTIVITY [None]
  - ARTERIAL THROMBOSIS LIMB [None]
  - DRUG INTERACTION [None]
  - RENAL FAILURE ACUTE [None]
  - CARDIAC ARREST [None]
